FAERS Safety Report 25327891 (Version 1)
Quarter: 2025Q2

REPORT INFORMATION
  Report Type: Spontaneous
  Country: US (occurrence: US)
  Receive Date: 20250518
  Receipt Date: 20250518
  Transmission Date: 20250717
  Serious: No
  Sender: SANOFI AVENTIS
  Company Number: US-SA-2025SA139094

PATIENT
  Age: 45 Year
  Sex: Female

DRUGS (5)
  1. DUPIXENT [Suspect]
     Active Substance: DUPILUMAB
     Indication: Dermatitis
     Route: 058
     Dates: start: 202502, end: 202502
  2. DUPIXENT [Suspect]
     Active Substance: DUPILUMAB
     Dosage: 300MG QOW
     Route: 058
     Dates: start: 2025, end: 20250505
  3. GOLD BOND ULTIMATE ECZEMA RELIEF [Concomitant]
     Active Substance: OATMEAL
  4. VASELINE PURE [Concomitant]
     Active Substance: PETROLATUM
  5. ADBRY [Concomitant]
     Active Substance: TRALOKINUMAB-LDRM

REACTIONS (2)
  - Skin exfoliation [Unknown]
  - Product use in unapproved indication [Unknown]

NARRATIVE: CASE EVENT DATE: 20250101
